FAERS Safety Report 11559574 (Version 1)
Quarter: 2015Q3

REPORT INFORMATION
  Report Type: Spontaneous
  Country: US (occurrence: US)
  Receive Date: 20150916
  Receipt Date: 20150916
  Transmission Date: 20151125
  Serious: No
  Sender: FDA-Public Use
  Company Number: US-ELI_LILLY_AND_COMPANY-US200808004557

PATIENT
  Age: 85 Year
  Sex: Female

DRUGS (6)
  1. NEURONTIN [Concomitant]
     Active Substance: GABAPENTIN
     Dosage: 400 MG, UNK
  2. FORTEO [Suspect]
     Active Substance: TERIPARATIDE
     Dosage: UNK, UNK
     Dates: end: 20080818
  3. ANTIHYPERTENSIVES [Concomitant]
     Active Substance: UNSPECIFIED INGREDIENT
  4. ASPIRIN CHILDREN [Concomitant]
  5. NITRO [Concomitant]
     Active Substance: NITROGLYCERIN
  6. FORTEO [Suspect]
     Active Substance: TERIPARATIDE
     Indication: OSTEOPOROSIS
     Dosage: UNK, UNK
     Dates: start: 20070820

REACTIONS (10)
  - Muscle spasms [Not Recovered/Not Resolved]
  - Delusion [Recovering/Resolving]
  - Delusion [Recovered/Resolved]
  - Weight decreased [Not Recovered/Not Resolved]
  - Gait disturbance [Not Recovered/Not Resolved]
  - Fatigue [Not Recovered/Not Resolved]
  - Musculoskeletal pain [Not Recovered/Not Resolved]
  - Ill-defined disorder [Not Recovered/Not Resolved]
  - Crying [Not Recovered/Not Resolved]
  - Balance disorder [Not Recovered/Not Resolved]

NARRATIVE: CASE EVENT DATE: 20070822
